FAERS Safety Report 12578077 (Version 1)
Quarter: 2016Q3

REPORT INFORMATION
  Report Type: Spontaneous
  Country: BR (occurrence: BR)
  Receive Date: 20160721
  Receipt Date: 20160721
  Transmission Date: 20161109
  Serious: Yes (Other)
  Sender: FDA-Public Use
  Company Number: BR-BRISTOL-MYERS SQUIBB COMPANY-BMS-2016-058175

PATIENT
  Sex: Male
  Weight: 98 kg

DRUGS (1)
  1. METFORMIN HYDROCHLORIDE. [Suspect]
     Active Substance: METFORMIN HYDROCHLORIDE
     Indication: TYPE 2 DIABETES MELLITUS
     Dosage: 500 MG, BID
     Route: 065

REACTIONS (5)
  - Blood cholesterol increased [Unknown]
  - Cholelithiasis [Unknown]
  - Blood pressure increased [Unknown]
  - Peripheral arterial occlusive disease [Unknown]
  - Blood glucose increased [Unknown]
